FAERS Safety Report 8613526-1 (Version None)
Quarter: 2012Q3

REPORT INFORMATION
  Report Type: 
  Country: None (occurrence: None)
  Receive Date: 20120823
  Receipt Date: 20120807
  Transmission Date: 20120928
  Serious: Yes (Other)
  Sender: FDA-Public Use
  Company Number: JP-009507513-1208JPN003973

PATIENT

DRUGS (9)
  1. CLARITIN REDITABS [Concomitant]
     Indication: PROPHYLAXIS
     Dosage: 10 MG, ONCE
     Route: 048
  2. LIVALO [Concomitant]
     Indication: HYPERLIPIDAEMIA
     Dosage: 1 MG, ONCE
     Route: 048
  3. REBETOL [Suspect]
     Indication: HEPATITIS C
     Dosage: 400 MG, ONCE
     Route: 048
     Dates: start: 20120523
  4. FEROTYM [Concomitant]
     Indication: IRON DEFICIENCY ANAEMIA
     Dosage: 100 MG, ONCE
     Route: 048
  5. PEG-INTRON [Suspect]
     Indication: HEPATITIS C
     Dosage: 0.8MCG/KG/WEEK
     Route: 058
     Dates: start: 20120523, end: 20120627
  6. TELAVIC [Suspect]
     Indication: HEPATITIS C
     Dosage: 1500 MG, ONCE
     Route: 048
     Dates: start: 20120523
  7. [THERAPY UNSPECIFIED] [Concomitant]
     Indication: INSOMNIA
     Dosage: 1 MG, ONCE
     Route: 048
  8. PEG-INTRON [Suspect]
     Dosage: 0.5G/KG/WEEK
     Route: 058
     Dates: start: 20120704
  9. EPADEL S [Concomitant]
     Indication: HYPERLIPIDAEMIA
     Dosage: 1800 MG, ONCE
     Route: 048

REACTIONS (1)
  - ANAEMIA [None]
